FAERS Safety Report 13116309 (Version 1)
Quarter: 2017Q1

REPORT INFORMATION
  Report Type: Spontaneous
  Country: US (occurrence: US)
  Receive Date: 20170116
  Receipt Date: 20170116
  Transmission Date: 20170428
  Serious: No
  Sender: FDA-Public Use
  Company Number: US-LUPIN PHARMACEUTICALS INC.-E2B_00005694

PATIENT
  Sex: Female
  Weight: 58.11 kg

DRUGS (2)
  1. CEFDINIR CAPSULES USP 300 MG [Suspect]
     Active Substance: CEFDINIR
     Indication: SINUSITIS
     Route: 048
     Dates: end: 20160611
  2. SYNTHROID [Concomitant]
     Active Substance: LEVOTHYROXINE SODIUM
     Indication: PRODUCT USED FOR UNKNOWN INDICATION
     Route: 065

REACTIONS (2)
  - Nausea [Recovered/Resolved]
  - Fatigue [Recovered/Resolved]
